FAERS Safety Report 8624133-9 (Version None)
Quarter: 2012Q3

REPORT INFORMATION
  Report Type: 
  Country: None (occurrence: None)
  Receive Date: 20120827
  Receipt Date: 20120823
  Transmission Date: 20120928
  Serious: Yes (Hospitalization)
  Sender: FDA-Public Use
  Company Number: US-JNJFOC-20120806583

PATIENT
  Sex: Female
  Weight: 52.3 kg

DRUGS (3)
  1. MESALAMINE [Concomitant]
     Route: 048
  2. PREDNISONE TAB [Concomitant]
  3. REMICADE [Suspect]
     Indication: INFLAMMATORY BOWEL DISEASE
     Route: 042
     Dates: start: 20100626

REACTIONS (1)
  - PANCREATITIS [None]
